FAERS Safety Report 17244790 (Version 2)
Quarter: 2020Q1

REPORT INFORMATION
  Report Type: Report from Study
  Country: IT (occurrence: IT)
  Receive Date: 20200107
  Receipt Date: 20200108
  Transmission Date: 20200409
  Serious: Yes (Other)
  Sender: FDA-Public Use
  Company Number: IT-TEVA-2020-IT-1163508

PATIENT
  Age: 71 Year
  Sex: Male

DRUGS (8)
  1. METFORMIN [Suspect]
     Active Substance: METFORMIN HYDROCHLORIDE
     Indication: DIABETES MELLITUS
     Dosage: 1 DF
     Route: 048
     Dates: start: 20181106, end: 20191106
  2. QUETIAPINE. [Concomitant]
     Active Substance: QUETIAPINE
     Dosage: 25 MG
  3. LYRICA [Concomitant]
     Active Substance: PREGABALIN
     Dosage: 1 DF
  4. ATENOLOLO DOROM [Concomitant]
     Dosage: 100 MG
  5. TORVAST 20 MG COMPRESSE MASTICABILI [Concomitant]
     Dosage: 1 DF
  6. TOUJEO [Suspect]
     Active Substance: INSULIN GLARGINE
     Indication: DIABETES MELLITUS
     Dosage: 21 IU
     Route: 058
     Dates: start: 20181106, end: 20191106
  7. ARIXTRA 2.5 MG/0.5 ML SOLUTION FOR INJECTION PRE-FILLED SYRINGE [Concomitant]
  8. QUINAPRIL E IDROCLOROTIAZIDE MYLAN GENERICS 20/12,5 MG COMPRESSE RIVES [Concomitant]
     Dosage: 20/12.5 MG

REACTIONS (2)
  - Loss of consciousness [Recovering/Resolving]
  - Hypoglycaemia [Recovering/Resolving]

NARRATIVE: CASE EVENT DATE: 20191106
